FAERS Safety Report 14880428 (Version 1)
Quarter: 2018Q2

REPORT INFORMATION
  Report Type: Spontaneous
  Country: US (occurrence: US)
  Receive Date: 20180511
  Receipt Date: 20180511
  Transmission Date: 20180711
  Serious: No
  Sender: FDA-Public Use
  Company Number: US-GLAXOSMITHKLINE-US2018080693

PATIENT
  Sex: Female

DRUGS (4)
  1. XANAX [Concomitant]
     Active Substance: ALPRAZOLAM
  2. BENLYSTA [Suspect]
     Active Substance: BELIMUMAB
     Indication: ARTHRALGIA
     Dosage: UNK UNK, SINGLE
     Dates: start: 2014, end: 2014
  3. NORCO [Concomitant]
     Active Substance: ACETAMINOPHEN\HYDROCODONE BITARTRATE
  4. BENLYSTA [Suspect]
     Active Substance: BELIMUMAB
     Indication: SKIN ULCER

REACTIONS (3)
  - Drug ineffective [Unknown]
  - Product use in unapproved indication [Unknown]
  - Off label use [Unknown]
